FAERS Safety Report 25676929 (Version 1)
Quarter: 2025Q3

REPORT INFORMATION
  Report Type: Spontaneous
  Country: US (occurrence: None)
  Receive Date: 20250813
  Receipt Date: 20250813
  Transmission Date: 20251020
  Serious: Yes (Hospitalization)
  Sender: FDA-CTU
  Company Number: None

PATIENT
  Age: 11 Week
  Sex: Male
  Weight: 81.9 kg

DRUGS (2)
  1. 7-HYDROXYMITRAGYNINE [Suspect]
     Active Substance: 7-HYDROXYMITRAGYNINE
     Indication: Stress
  2. 7-HYDROXYMITRAGYNINE [Suspect]
     Active Substance: 7-HYDROXYMITRAGYNINE
     Indication: Pain

REACTIONS (4)
  - Illness [None]
  - Pain [None]
  - Loss of consciousness [None]
  - Mental disorder [None]

NARRATIVE: CASE EVENT DATE: 20250810
